FAERS Safety Report 17417630 (Version 1)
Quarter: 2020Q1

REPORT INFORMATION
  Report Type: Spontaneous
  Country: US (occurrence: US)
  Receive Date: 20200213
  Receipt Date: 20200213
  Transmission Date: 20200409
  Serious: Yes (Other)
  Sender: FDA-Public Use
  Company Number: US-BEH-2020113064

PATIENT
  Sex: Female

DRUGS (1)
  1. PRIVIGEN [Suspect]
     Active Substance: HUMAN IMMUNOGLOBULIN G
     Indication: MYASTHENIC SYNDROME
     Dosage: 90 GRAM OVER THREE DAYS
     Route: 042

REACTIONS (5)
  - Malaise [Unknown]
  - Myasthenic syndrome [Unknown]
  - Product supply issue [Unknown]
  - Therapeutic product effect incomplete [Unknown]
  - Poor venous access [Unknown]
